FAERS Safety Report 7533243-9 (Version None)
Quarter: 2011Q2

REPORT INFORMATION
  Report Type: 
  Country: None (occurrence: None)
  Receive Date: 20110608
  Receipt Date: 20110124
  Transmission Date: 20111010
  Serious: Yes (Hospitalization)
  Sender: FDA-Public Use
  Company Number: US-BAYER-201036399NA

PATIENT
  Sex: Female
  Weight: 59 kg

DRUGS (1)
  1. YASMIN [Suspect]
     Indication: PRODUCT USED FOR UNKNOWN INDICATION
     Dates: start: 20050701, end: 20050901

REACTIONS (3)
  - DEEP VEIN THROMBOSIS [None]
  - VARICOSE VEIN [None]
  - PERIPHERAL VASCULAR DISORDER [None]
